FAERS Safety Report 6980338-4 (Version None)
Quarter: 2010Q3

REPORT INFORMATION
  Report Type: 
  Country: None (occurrence: None)
  Receive Date: 20100914
  Receipt Date: 20100902
  Transmission Date: 20110219
  Serious: Yes (Other)
  Sender: FDA-Public Use
  Company Number: ES-ELI_LILLY_AND_COMPANY-ES201009001107

PATIENT
  Sex: Female
  Weight: 65.5 kg

DRUGS (8)
  1. FORTEO [Suspect]
     Indication: OSTEOPOROSIS
     Dosage: 20 UG, DAILY (1/D)
     Route: 058
  2. ACOVIL [Concomitant]
     Indication: HYPERTENSION
     Dosage: 1 TABLET/24H
     Route: 048
  3. EMCONCOR [Concomitant]
     Indication: CARDIAC DISORDER
     Dosage: 2 TABLET/24H
     Route: 048
     Dates: start: 20100801
  4. CALCIUM SANDOZ FORTE D [Concomitant]
     Indication: OSTEOPOROSIS
     Dosage: 1 TABLET/24H
     Route: 048
  5. TEMAZEPAM [Concomitant]
     Indication: ANXIETY
     Dosage: 1 TABLET/24H
     Route: 048
  6. PARIET [Concomitant]
     Indication: PROPHYLAXIS AGAINST GASTROINTESTINAL ULCER
     Dosage: 1 TABLET/24H
     Route: 048
  7. ACETAMINOPHEN [Concomitant]
     Indication: ANALGESIC THERAPY
     Dosage: IF NEEDED
     Route: 048
  8. ZALDIAR [Concomitant]
     Indication: ANALGESIC THERAPY
     Dosage: IF NEEDED
     Route: 048

REACTIONS (2)
  - FALL [None]
  - FEMUR FRACTURE [None]
